FAERS Safety Report 12951304 (Version 1)
Quarter: 2016Q4

REPORT INFORMATION
  Report Type: Spontaneous
  Country: US (occurrence: US)
  Receive Date: 20161117
  Receipt Date: 20161117
  Transmission Date: 20170207
  Serious: No
  Sender: FDA-Public Use
  Company Number: US-MISSION PHARMACAL COMPANY-1059698

PATIENT
  Age: 46 Year
  Sex: Male

DRUGS (1)
  1. THIOLA [Suspect]
     Active Substance: TIOPRONIN
     Indication: CYSTINURIA
     Route: 065
     Dates: start: 20160422

REACTIONS (5)
  - Drug dose omission [Unknown]
  - Oedema peripheral [Unknown]
  - Swelling face [Unknown]
  - Abnormal weight gain [Unknown]
  - Abdominal distension [Unknown]
